FAERS Safety Report 4735266-1 (Version None)
Quarter: 2005Q3

REPORT INFORMATION
  Report Type: 
  Country: None (occurrence: None)
  Receive Date: 20050802
  Receipt Date: 20050714
  Transmission Date: 20060218
  Serious: Yes (Hospitalization, Other)
  Sender: FDA-Public Use
  Company Number: PAR_0066_2005

PATIENT
  Age: 17 Year
  Sex: Male

DRUGS (3)
  1. IBUPROFEN [Suspect]
     Indication: PAIN MANAGEMENT
     Dosage: 400 MG ONCE PO
     Route: 048
  2. FLIXOTIDE ^ALLEN + HANBURYS^ [Concomitant]
  3. GENERAL ANESTHESIA [Concomitant]

REACTIONS (7)
  - AGITATION [None]
  - DYSPNOEA [None]
  - SELF-MEDICATION [None]
  - SPEECH DISORDER [None]
  - STATUS ASTHMATICUS [None]
  - THERAPY NON-RESPONDER [None]
  - WHEEZING [None]
